FAERS Safety Report 4434905-2 (Version None)
Quarter: 2004Q3

REPORT INFORMATION
  Report Type: 
  Country: None (occurrence: None)
  Receive Date: 20040726
  Receipt Date: 20040507
  Transmission Date: 20050211
  Serious: No
  Sender: FDA-Public Use
  Company Number: USA040566966

PATIENT
  Age: 65 Year
  Sex: Female
  Weight: 47 kg

DRUGS (1)
  1. FORTEO [Suspect]
     Indication: OSTEOPOROSIS
     Dosage: 20 UG/1 DAY
     Dates: start: 20040201

REACTIONS (9)
  - ASPARTATE AMINOTRANSFERASE INCREASED [None]
  - BIOPSY [None]
  - BLOOD CALCIUM INCREASED [None]
  - DRUG HYPERSENSITIVITY [None]
  - DYSGEUSIA [None]
  - MALAISE [None]
  - MYALGIA [None]
  - NAUSEA [None]
  - WOUND INFECTION STAPHYLOCOCCAL [None]
